FAERS Safety Report 19115267 (Version 2)
Quarter: 2022Q2

REPORT INFORMATION
  Report Type: Report from Study
  Country: US (occurrence: US)
  Receive Date: 20210409
  Receipt Date: 20220519
  Transmission Date: 20220720
  Serious: Yes (Death, Hospitalization, Other)
  Sender: FDA-Public Use
  Company Number: US-TAKEDA-2018TUS034431

PATIENT
  Sex: Female

DRUGS (5)
  1. PONATINIB [Interacting]
     Active Substance: PONATINIB
     Indication: Acute lymphocytic leukaemia recurrent
     Dosage: 30 MILLIGRAM, QD
     Route: 048
     Dates: start: 20181105
  2. PONATINIB [Interacting]
     Active Substance: PONATINIB
     Dosage: 15 MILLIGRAM, QD
     Route: 048
  3. VALTREX [Concomitant]
     Active Substance: VALACYCLOVIR HYDROCHLORIDE
     Dosage: 500 MILLIGRAM
     Route: 065
  4. SYNTHROID [Concomitant]
     Active Substance: LEVOTHYROXINE SODIUM
     Dosage: 88 MICROGRAM
     Route: 065
  5. VENCLEXTA [Concomitant]
     Active Substance: VENETOCLAX
     Dosage: UNK
     Route: 065

REACTIONS (8)
  - Death [Fatal]
  - Central nervous system leukaemia [Unknown]
  - Pyrexia [Recovered/Resolved]
  - Hepatic enzyme abnormal [Unknown]
  - Drug interaction [Unknown]
  - Rash [Unknown]
  - Infection [Unknown]
  - Platelet count decreased [Unknown]
